FAERS Safety Report 8030491-9 (Version None)
Quarter: 2012Q1

REPORT INFORMATION
  Report Type: 
  Country: None (occurrence: None)
  Receive Date: 20120109
  Receipt Date: 20120106
  Transmission Date: 20120608
  Serious: No
  Sender: FDA-Public Use
  Company Number: US-PFIZER INC-2012004890

PATIENT
  Sex: Male
  Weight: 78.458 kg

DRUGS (14)
  1. VITAMIN D [Concomitant]
     Dosage: 1.25 MG, MONTHLY
  2. POTASSIUM [Concomitant]
     Dosage: UNK, 2X/DAY
  3. SPIRONOLACTONE [Concomitant]
     Dosage: 50 MG, 2X/DAY
  4. MORPHINE [Concomitant]
     Dosage: 30 MG, 3X/DAY
  5. NEXIUM [Concomitant]
     Dosage: UNK
  6. TRAZODONE [Concomitant]
     Dosage: 100 MG, UNK
  7. CYCLOBENZAPRINE [Concomitant]
     Dosage: 10 MG, 2X/DAY
  8. LORATADINE [Concomitant]
     Dosage: 10 MG, 1X/DAY
  9. FUROSEMIDE [Concomitant]
     Dosage: 20 MG, UNK
  10. TRAMADOL [Concomitant]
     Dosage: 50 MG, 3X/DAY
  11. OMEPRAZOLE [Concomitant]
     Dosage: 40 MG, 1X/DAY
  12. CHANTIX [Suspect]
     Indication: SMOKING CESSATION THERAPY
     Dosage: 0.5 MG, 1X/DAY
     Route: 048
  13. LISINOPRIL [Concomitant]
     Dosage: 20 MG, UNK
  14. AMBIEN [Concomitant]
     Dosage: UNK

REACTIONS (3)
  - PAROSMIA [None]
  - NAUSEA [None]
  - FEELING ABNORMAL [None]
